FAERS Safety Report 6699573-8 (Version None)
Quarter: 2010Q2

REPORT INFORMATION
  Report Type: 
  Country: None (occurrence: None)
  Receive Date: 20100427
  Receipt Date: 20100427
  Transmission Date: 20101027
  Serious: Yes (Hospitalization)
  Sender: FDA-Public Use
  Company Number: None

PATIENT
  Sex: Male
  Weight: 12.2471 kg

DRUGS (2)
  1. SINGULAIR [Suspect]
     Indication: ASTHMA
     Dosage: 4MG 1X/DAY PO
     Route: 048
     Dates: start: 20090201, end: 20100422
  2. SINGULAIR [Suspect]
     Indication: HYPERSENSITIVITY
     Dosage: 4MG 1X/DAY PO
     Route: 048
     Dates: start: 20090201, end: 20100422

REACTIONS (4)
  - BREATH HOLDING [None]
  - CONVULSION [None]
  - CRYING [None]
  - SEIZURE ANOXIC [None]
